FAERS Safety Report 5104586-3 (Version None)
Quarter: 2006Q3

REPORT INFORMATION
  Report Type: 
  Country: None (occurrence: None)
  Receive Date: 20060914
  Receipt Date: 20051031
  Transmission Date: 20061208
  Serious: No
  Sender: FDA-Public Use
  Company Number: US-BRISTOL-MYERS SQUIBB COMPANY-13162326

PATIENT
  Age: 59 Year
  Sex: Male
  Weight: 86 kg

DRUGS (10)
  1. BUSPAR [Suspect]
  2. VALIUM [Concomitant]
  3. VENLAFAXINE HCL [Concomitant]
  4. LISINOPRIL [Concomitant]
  5. ATORVASTATIN CALCIUM [Concomitant]
  6. TERAZOSIN HCL [Concomitant]
  7. DILTIAZEM HCL [Concomitant]
  8. BUPROPION HCL [Concomitant]
  9. METOPROLOL [Concomitant]
  10. VITAMINS [Concomitant]

REACTIONS (1)
  - THERAPEUTIC RESPONSE UNEXPECTED [None]
